FAERS Safety Report 24662549 (Version 1)
Quarter: 2024Q4

REPORT INFORMATION
  Report Type: Spontaneous
  Country: US (occurrence: US)
  Receive Date: 20241126
  Receipt Date: 20241126
  Transmission Date: 20250114
  Serious: No
  Sender: ROCHE
  Company Number: US-ROCHE-10000136611

PATIENT
  Sex: Female

DRUGS (1)
  1. ACTEMRA [Suspect]
     Active Substance: TOCILIZUMAB
     Indication: Interstitial lung disease
     Route: 058
     Dates: start: 202409

REACTIONS (5)
  - Product quality issue [Unknown]
  - Accidental exposure to product [Unknown]
  - Accidental exposure to product [Unknown]
  - No adverse event [Unknown]
  - Off label use [Unknown]
